FAERS Safety Report 15348241 (Version 1)
Quarter: 2018Q3

REPORT INFORMATION
  Report Type: Spontaneous
  Country: US (occurrence: US)
  Receive Date: 20180829
  Receipt Date: 20180829
  Transmission Date: 20181010
  Serious: Yes (Hospitalization)
  Sender: FDA-Public Use
  Company Number: None

PATIENT
  Age: 43 Year
  Sex: Male

DRUGS (1)
  1. DEFEROXAMINE [Suspect]
     Active Substance: DEFEROXAMINE\DEFEROXAMINE MESYLATE
     Indication: SICKLE CELL DISEASE
     Route: 042

REACTIONS (4)
  - Chest pain [None]
  - Drug dose omission [None]
  - Myalgia [None]
  - Dyspnoea [None]

NARRATIVE: CASE EVENT DATE: 20180828
